FAERS Safety Report 22173683 (Version 11)
Quarter: 2023Q2

REPORT INFORMATION
  Report Type: Report from Study
  Country: JP (occurrence: None)
  Receive Date: 20230404
  Receipt Date: 20230602
  Transmission Date: 20230722
  Serious: Yes (Life-Threatening, Hospitalization)
  Sender: FDA-Public Use
  Company Number: JP-Eisai Medical Research-EC-2023-137609

PATIENT
  Age: 67 Year
  Sex: Male
  Weight: 86 kg

DRUGS (10)
  1. LENVATINIB [Suspect]
     Active Substance: LENVATINIB
     Indication: Clear cell renal cell carcinoma
     Route: 048
     Dates: start: 20230323, end: 20230330
  2. PEMBROLIZUMAB [Suspect]
     Active Substance: PEMBROLIZUMAB
     Indication: Clear cell renal cell carcinoma
     Route: 041
     Dates: start: 20230323, end: 20230323
  3. BELZUTIFAN [Suspect]
     Active Substance: BELZUTIFAN
     Indication: Clear cell renal cell carcinoma
     Route: 048
     Dates: start: 20230323, end: 20230330
  4. ETIZOLAM [Concomitant]
     Active Substance: ETIZOLAM
     Dates: start: 201601, end: 20230331
  5. METHYLCOBALAMIN [Concomitant]
     Active Substance: METHYLCOBALAMIN
     Dates: start: 201601, end: 20230331
  6. ADALAT CC [Concomitant]
     Active Substance: NIFEDIPINE
     Dates: start: 20230313, end: 20230331
  7. TENORMIN [Concomitant]
     Active Substance: ATENOLOL
     Dates: start: 199601, end: 20230331
  8. VONOPRAZAN FUMARATE [Concomitant]
     Active Substance: VONOPRAZAN FUMARATE
     Dates: start: 202302, end: 20230331
  9. ALLOPURINOL [Concomitant]
     Active Substance: ALLOPURINOL
     Dates: start: 201801, end: 20230331
  10. SOLULACT D [Concomitant]
     Route: 030
     Dates: start: 20230330, end: 20230330

REACTIONS (3)
  - Respiratory failure [Recovering/Resolving]
  - C-reactive protein increased [Recovered/Resolved]
  - Pyrexia [Recovered/Resolved]

NARRATIVE: CASE EVENT DATE: 20230330
